FAERS Safety Report 24702365 (Version 1)
Quarter: 2024Q4

REPORT INFORMATION
  Report Type: Spontaneous
  Country: CN (occurrence: CN)
  Receive Date: 20241205
  Receipt Date: 20241205
  Transmission Date: 20250114
  Serious: Yes (Other)
  Sender: BAXTER
  Company Number: None

PATIENT
  Age: 61 Year
  Sex: Male
  Weight: 54 kg

DRUGS (1)
  1. MANNITOL [Suspect]
     Active Substance: MANNITOL
     Indication: Intraocular pressure increased
     Dosage: 250 ML AT 20:02, ONE TIME IN ONE DAY
     Route: 042
     Dates: start: 20241113, end: 20241113

REACTIONS (7)
  - Depressed level of consciousness [Recovered/Resolved]
  - Eye pain [Recovered/Resolved]
  - Condition aggravated [Recovered/Resolved]
  - Headache [Recovered/Resolved]
  - Peripheral coldness [Unknown]
  - Unresponsive to stimuli [Unknown]
  - Somnolence [Unknown]

NARRATIVE: CASE EVENT DATE: 20241113
